FAERS Safety Report 10255406 (Version 1)
Quarter: 2014Q2

REPORT INFORMATION
  Report Type: Spontaneous
  Country: US (occurrence: US)
  Receive Date: 20140624
  Receipt Date: 20140624
  Transmission Date: 20141212
  Serious: No
  Sender: FDA-Public Use
  Company Number: US-BAYER-2014-094406

PATIENT
  Age: 53 Year
  Sex: Male
  Weight: 86 kg

DRUGS (2)
  1. ALEVE CAPLET [Suspect]
     Indication: TOOTHACHE
     Dosage: UNK
     Route: 048
  2. ALEVE CAPLET [Suspect]
     Indication: TOOTHACHE
     Dosage: 4 DF, UNK
     Route: 048
     Dates: start: 20140621

REACTIONS (2)
  - Drug ineffective [None]
  - Extra dose administered [None]
